FAERS Safety Report 25154817 (Version 1)
Quarter: 2025Q2

REPORT INFORMATION
  Report Type: Spontaneous
  Country: US (occurrence: US)
  Receive Date: 20250403
  Receipt Date: 20250403
  Transmission Date: 20250717
  Serious: No
  Sender: PFIZER
  Company Number: US-PFIZER INC-202500069957

PATIENT
  Age: 77 Year
  Sex: Female
  Weight: 57.61 kg

DRUGS (1)
  1. NURTEC ODT [Suspect]
     Active Substance: RIMEGEPANT SULFATE
     Indication: Migraine
     Dosage: 75 MG, 2X/DAY EVERY SECOND DAY

REACTIONS (2)
  - Overdose [Unknown]
  - Diplopia [Unknown]
